FAERS Safety Report 5828795-0 (Version None)
Quarter: 2008Q3

REPORT INFORMATION
  Report Type: 
  Country: None (occurrence: None)
  Receive Date: 20080731
  Receipt Date: 20080725
  Transmission Date: 20090109
  Serious: Yes (Other)
  Sender: FDA-Public Use
  Company Number: JP-MERCK-0806USA00233

PATIENT
  Age: 57 Year
  Sex: Male
  Weight: 76 kg

DRUGS (12)
  1. STROMECTOL [Suspect]
     Indication: ACARODERMATITIS
     Route: 048
     Dates: start: 20080519, end: 20080519
  2. BENZYL BENZOATE [Concomitant]
     Route: 061
     Dates: start: 20080519
  3. ALESION [Concomitant]
     Route: 048
     Dates: start: 20080430, end: 20080601
  4. ATARAX [Concomitant]
     Route: 048
     Dates: start: 20080430, end: 20080624
  5. RINDERON (BETAMETHASONE ACETATE (+) BETAMETHASONE SODIUM PHOSPHATE) [Concomitant]
     Route: 065
     Dates: start: 20080301
  6. DAPSONE [Concomitant]
     Route: 048
     Dates: start: 20080301
  7. ALLELOCK [Concomitant]
     Route: 048
     Dates: start: 20080301
  8. DERMOVATE [Concomitant]
     Route: 061
     Dates: start: 20080301
  9. PREDONINE [Concomitant]
     Route: 048
     Dates: start: 20080430, end: 20080519
  10. MUCOSTA [Concomitant]
     Route: 048
     Dates: start: 20080401
  11. MINOCYCLINE HCL [Concomitant]
     Route: 048
     Dates: start: 20080430
  12. POLARAMINE [Concomitant]
     Route: 048
     Dates: start: 20080430

REACTIONS (3)
  - DERMATITIS EXFOLIATIVE [None]
  - OEDEMA PERIPHERAL [None]
  - PYREXIA [None]
